FAERS Safety Report 7440365-X (Version None)
Quarter: 2011Q2

REPORT INFORMATION
  Report Type: 
  Country: None (occurrence: None)
  Receive Date: 20110427
  Receipt Date: 20110415
  Transmission Date: 20111010
  Serious: Yes (Death, Hospitalization)
  Sender: FDA-Public Use
  Company Number: US-CELGENEUS-163-20785-10110092

PATIENT
  Age: 80 Year
  Sex: Male
  Weight: 95.1 kg

DRUGS (27)
  1. THALOMID [Suspect]
     Dosage: 50 MILLIGRAM
     Route: 048
     Dates: start: 20081101
  2. OMEGA-3 FATTY ACIDS [Concomitant]
     Dosage: 340MG-1,000MG
     Route: 065
     Dates: start: 20080423, end: 20101013
  3. OMEPRAZOLE [Concomitant]
     Dosage: 40 MILLIGRAM
     Route: 065
     Dates: start: 20080311, end: 20101013
  4. FUROSEMIDE [Concomitant]
     Dosage: 20 MILLIGRAM
     Route: 065
     Dates: start: 20090402
  5. RED BLOOD CELLS [Concomitant]
     Route: 051
     Dates: start: 20101001, end: 20101001
  6. PROCHLORPERAZINE TAB [Concomitant]
     Indication: NAUSEA
     Dosage: 10 MILLIGRAM
     Route: 065
     Dates: start: 20080818, end: 20101008
  7. RED BLOOD CELLS [Concomitant]
     Dosage: 2 UNITS
     Route: 051
     Dates: start: 20101001, end: 20101001
  8. METRONIDAZOLE [Concomitant]
     Dosage: 500 MILLIGRAM
     Route: 065
     Dates: start: 20101021, end: 20101030
  9. DSS [Concomitant]
     Indication: CONSTIPATION
     Dosage: 100 MILLIGRAM
     Route: 065
     Dates: start: 20071024, end: 20101013
  10. PLATELETS TRANSFUSION [Concomitant]
     Dosage: 1 UNITS
     Route: 051
     Dates: start: 20101001, end: 20101001
  11. LORTAB [Concomitant]
     Route: 065
  12. THALOMID [Suspect]
     Dosage: 50 MILLIGRAM
     Route: 048
     Dates: start: 20100814, end: 20100825
  13. COUMADIN [Concomitant]
     Route: 065
     Dates: start: 20071022, end: 20101013
  14. FENOFIBRATE [Concomitant]
     Dosage: 134 MILLIGRAM
     Route: 065
     Dates: start: 20100909, end: 20101013
  15. SIMVASTATIN [Concomitant]
     Dosage: 20 MILLIGRAM
     Route: 065
     Dates: start: 20100927, end: 20101013
  16. TRICOR [Concomitant]
     Dosage: 48 MILLIGRAM
     Route: 065
     Dates: start: 20080423, end: 20100909
  17. PLATELETS TRANSFUSION [Concomitant]
     Route: 051
     Dates: start: 20101001, end: 20101001
  18. ASPIRIN [Concomitant]
     Dosage: 325 MILLIGRAM
     Route: 048
     Dates: start: 20080719
  19. ASPIRIN [Concomitant]
     Dosage: 81 MILLIGRAM
     Route: 065
     Dates: start: 20080912, end: 20101013
  20. METOPROLOL [Concomitant]
     Dosage: 25 MILLIGRAM
     Route: 065
     Dates: start: 20100702
  21. THALOMID [Suspect]
     Indication: MULTIPLE MYELOMA
     Dosage: 100 MILLIGRAM
     Route: 048
     Dates: start: 20080719
  22. MELPHALAN [Suspect]
     Indication: MULTIPLE MYELOMA
     Dosage: 9 MILLIGRAM/SQ. METER
     Route: 048
     Dates: start: 20080719, end: 20090623
  23. LIDODERM [Concomitant]
     Indication: PAIN
     Dosage: 700 MILLIGRAM
     Route: 062
     Dates: start: 20090609, end: 20100916
  24. POTASSIUM CHLORIDE [Concomitant]
     Indication: SUPPLEMENTATION THERAPY
     Dosage: 10 MILLIEQUIVALENTS
     Route: 065
     Dates: start: 20090402, end: 20101013
  25. ACETAMINOPHEN AND HYDROCODONE BITARTRATE [Concomitant]
     Indication: PAIN
     Dosage: 5MG-500MG
     Route: 065
     Dates: start: 20090609
  26. PREDNISONE [Suspect]
     Indication: MULTIPLE MYELOMA
     Dosage: 100 MILLIGRAM
     Route: 048
     Dates: start: 20080719, end: 20090623
  27. VITAMIN K TAB [Concomitant]
     Route: 065
     Dates: start: 20101001

REACTIONS (1)
  - ACUTE MYELOID LEUKAEMIA [None]
